FAERS Safety Report 6448554-8 (Version None)
Quarter: 2009Q4

REPORT INFORMATION
  Report Type: 
  Country: None (occurrence: None)
  Receive Date: 20091120
  Receipt Date: 20091110
  Transmission Date: 20100525
  Serious: Yes (Other)
  Sender: FDA-Public Use
  Company Number: FR-PFIZER INC-2009281478

PATIENT
  Age: 59 Year
  Sex: Male
  Weight: 65 kg

DRUGS (8)
  1. LYRICA [Suspect]
     Indication: CERVICAL ROOT PAIN
     Dosage: 150 MG, 2X/DAY
     Dates: start: 20090128
  2. LYRICA [Suspect]
     Indication: SCIATICA
  3. BISOPROLOL [Concomitant]
     Indication: HYPERTENSION
     Dosage: 10 MG, 1X/DAY
     Route: 048
  4. NEXIUM [Concomitant]
     Indication: GASTROOESOPHAGEAL REFLUX DISEASE
     Dosage: 20 MG, 1X/DAY
  5. ART 50 [Concomitant]
     Indication: OSTEOARTHRITIS
     Dosage: 50 MG, 1X/DAY
     Route: 048
  6. CELEBREX [Concomitant]
     Indication: OSTEOARTHRITIS
     Dosage: 200 MG, 1X/DAY
     Route: 048
  7. CONTRAMAL [Concomitant]
     Indication: OSTEOARTHRITIS
     Dosage: UNK, 2X/DAY
     Route: 048
  8. DOLIPRANE [Concomitant]
     Indication: OSTEOARTHRITIS
     Dosage: UNK, 4X/DAY

REACTIONS (2)
  - COGNITIVE DISORDER [None]
  - HYPERTENSION [None]
